FAERS Safety Report 9704405 (Version 1)
Quarter: 2013Q4

REPORT INFORMATION
  Report Type: Spontaneous
  Country: JP (occurrence: JP)
  Receive Date: 20131122
  Receipt Date: 20131122
  Transmission Date: 20140711
  Serious: Yes (Other)
  Sender: FDA-Public Use
  Company Number: JP-CELGENEUS-087-21660-13114362

PATIENT
  Age: 72 Year
  Sex: Male

DRUGS (2)
  1. ABRAXANE [Suspect]
     Indication: PRODUCT USED FOR UNKNOWN INDICATION
     Dosage: 60 MILLIGRAM
     Route: 065
     Dates: start: 20130827, end: 20131009
  2. ABRAXANE [Suspect]
     Dosage: 145 MILLIGRAM
     Route: 065
     Dates: start: 20131016, end: 20131023

REACTIONS (1)
  - Pseudomembranous colitis [Recovered/Resolved]
